FAERS Safety Report 9679473 (Version 1)
Quarter: 2013Q4

REPORT INFORMATION
  Report Type: Spontaneous
  Country: US (occurrence: US)
  Receive Date: 20131109
  Receipt Date: 20131109
  Transmission Date: 20140711
  Serious: No
  Sender: FDA-Public Use
  Company Number: US-SANOFI-AVENTIS-2013SA051800

PATIENT
  Age: 21 Year
  Sex: Female

DRUGS (1)
  1. ALLEGRA-D [Suspect]
     Indication: HYPERSENSITIVITY
     Route: 048
     Dates: start: 20130519, end: 20130519

REACTIONS (6)
  - Adverse reaction [Recovered/Resolved]
  - Somnolence [Recovered/Resolved]
  - Feeling abnormal [Recovered/Resolved]
  - Feeling cold [Recovered/Resolved]
  - Hyperhidrosis [Recovered/Resolved]
  - Euphoric mood [Recovered/Resolved]
